FAERS Safety Report 5863525-8 (Version None)
Quarter: 2008Q3

REPORT INFORMATION
  Report Type: 
  Country: None (occurrence: None)
  Receive Date: 20080828
  Receipt Date: 20080820
  Transmission Date: 20090109
  Serious: Yes (Hospitalization, Other)
  Sender: FDA-Public Use
  Company Number: US-ELI_LILLY_AND_COMPANY-US200808004101

PATIENT
  Sex: Male
  Weight: 99.773 kg

DRUGS (12)
  1. BYETTA [Suspect]
     Indication: TYPE 2 DIABETES MELLITUS
     Dosage: 5 UG, 2/D
     Route: 058
     Dates: start: 20060301, end: 20060401
  2. BYETTA [Suspect]
     Dosage: 10 UG, 2/D
     Route: 058
     Dates: start: 20060401, end: 20060701
  3. BYETTA [Suspect]
     Dosage: 5 UG, 2/D
     Route: 058
     Dates: start: 20061001, end: 20061101
  4. BYETTA [Suspect]
     Dosage: 10 UG, 2/D
     Route: 058
     Dates: start: 20061101, end: 20061101
  5. GLIMEPIRIDE [Concomitant]
     Indication: TYPE 2 DIABETES MELLITUS
     Dosage: 4 MG, 2/D
     Route: 048
     Dates: end: 20061101
  6. ACTOS [Concomitant]
     Dosage: 45 MG, DAILY (1/D)
     Route: 048
     Dates: end: 20070101
  7. GLUCOPHAGE [Concomitant]
     Indication: TYPE 2 DIABETES MELLITUS
     Dosage: 2000 MG, DAILY (1/D)
  8. LIPITOR [Concomitant]
     Dosage: 80 MG, DAILY (1/D)
     Route: 048
     Dates: start: 20060101, end: 20070101
  9. ALTACE [Concomitant]
     Dosage: 10 MG, DAILY (1/D)
     Route: 048
  10. CELEBREX [Concomitant]
     Dosage: 100 MG, UNK
     Route: 048
  11. LANTUS [Concomitant]
     Indication: TYPE 2 DIABETES MELLITUS
     Dosage: 20 U, UNK
     Route: 058
     Dates: end: 20061101
  12. FLOMAX [Concomitant]
     Dosage: 0.4 MG, UNK

REACTIONS (11)
  - DIARRHOEA [None]
  - HEPATIC ENZYME ABNORMAL [None]
  - JAUNDICE [None]
  - MALAISE [None]
  - NAUSEA [None]
  - PANCREATIC DISORDER [None]
  - PANCREATITIS [None]
  - PROSTATOMEGALY [None]
  - PRURITUS [None]
  - STENT PLACEMENT [None]
  - WEIGHT DECREASED [None]
